FAERS Safety Report 5081684-4 (Version None)
Quarter: 2006Q3

REPORT INFORMATION
  Report Type: 
  Country: None (occurrence: None)
  Receive Date: 20060816
  Receipt Date: 20060811
  Transmission Date: 20061208
  Serious: Yes (Death)
  Sender: FDA-Public Use
  Company Number: IE-BOEHRINGER INGELHEIM PHARMACEUTICALS, INC.-2006-UK-03518IE

PATIENT
  Age: 16 Year
  Sex: Female

DRUGS (7)
  1. DIXARIT [Suspect]
     Indication: APHONIA
     Route: 048
     Dates: start: 20060810
  2. DIXARIT [Suspect]
     Indication: LARYNGITIS
  3. DIXARIT [Suspect]
     Indication: WEIGHT DECREASED
  4. NEURONTIN [Concomitant]
  5. ELTROXIN (GENERIC) [Concomitant]
  6. VENTOLIN [Concomitant]
  7. SERETIDE EVOHALER [Concomitant]

REACTIONS (2)
  - ARRHYTHMIA [None]
  - SYNCOPE [None]
